FAERS Safety Report 25954927 (Version 1)
Quarter: 2025Q4

REPORT INFORMATION
  Report Type: Report from Study
  Country: US (occurrence: US)
  Receive Date: 20251024
  Receipt Date: 20251024
  Transmission Date: 20260117
  Serious: Yes (Other)
  Sender: JOHNSON AND JOHNSON
  Company Number: US-JNJFOC-20251027199

PATIENT
  Sex: Female

DRUGS (11)
  1. SPRAVATO [Suspect]
     Active Substance: ESKETAMINE
     Indication: Depression
     Dosage: ^56 MG, 1 TOTAL DOSE^
     Route: 045
     Dates: start: 20211215, end: 20211215
  2. SPRAVATO [Suspect]
     Active Substance: ESKETAMINE
     Dosage: ^84 MG, 20 TOTAL DOSES^
     Route: 045
     Dates: start: 20211223, end: 20220427
  3. SPRAVATO [Suspect]
     Active Substance: ESKETAMINE
     Dosage: ^UNIT DOSE UNKNOWN, 1 TOTAL DOSE^
     Route: 045
     Dates: start: 20220503, end: 20220503
  4. SPRAVATO [Suspect]
     Active Substance: ESKETAMINE
     Dosage: ^84 MG, 36 TOTAL DOSES^
     Route: 045
     Dates: start: 20220509, end: 20230223
  5. SPRAVATO [Suspect]
     Active Substance: ESKETAMINE
     Dosage: ^UNIT DOSE UNKNOWN, 1 TOTAL DOSE^
     Route: 045
     Dates: start: 20230307, end: 20230307
  6. SPRAVATO [Suspect]
     Active Substance: ESKETAMINE
     Dosage: ^84 MG, 49 TOTAL DOSES^
     Route: 045
     Dates: start: 20230308, end: 20240326
  7. SPRAVATO [Suspect]
     Active Substance: ESKETAMINE
     Dosage: ^UNIT DOSE UNKNOWN, 1 TOTAL DOSE^
     Route: 045
     Dates: start: 20240403, end: 20240403
  8. SPRAVATO [Suspect]
     Active Substance: ESKETAMINE
     Dosage: ^84 MG, 10 TOTAL DOSES^
     Route: 045
     Dates: start: 20240411, end: 20240819
  9. SPRAVATO [Suspect]
     Active Substance: ESKETAMINE
     Dosage: ^UNIT DOSE UNKNOWN, 1 TOTAL DOSE^
     Route: 045
     Dates: start: 20240826, end: 20240826
  10. SPRAVATO [Suspect]
     Active Substance: ESKETAMINE
     Dosage: ^84 MG, 62 TOTAL DOSES^
     Route: 045
     Dates: start: 20240903, end: 20250819
  11. SPRAVATO [Suspect]
     Active Substance: ESKETAMINE
     Dosage: ^84 MG, 5 TOTAL DOSES^
     Route: 045
     Dates: start: 20211124, end: 20211213

REACTIONS (1)
  - Surgery [Unknown]
